FAERS Safety Report 10066667 (Version 1)
Quarter: 2014Q2

REPORT INFORMATION
  Report Type: Spontaneous
  Country: US (occurrence: US)
  Receive Date: 20140408
  Receipt Date: 20140408
  Transmission Date: 20141212
  Serious: No
  Sender: FDA-Public Use
  Company Number: US-TEVA-471986USA

PATIENT
  Age: 84 Year
  Sex: Male
  Weight: 82.63 kg

DRUGS (3)
  1. PROAIR HFA [Suspect]
     Indication: PULMONARY CONGESTION
     Dates: start: 20140325
  2. PROAIR HFA [Suspect]
     Indication: NASOPHARYNGITIS
  3. HYTRIN [Concomitant]

REACTIONS (5)
  - Wrong technique in drug usage process [Unknown]
  - Eye irritation [Recovered/Resolved]
  - Eye pruritus [Recovered/Resolved]
  - Pyrexia [Unknown]
  - Tremor [Unknown]
